FAERS Safety Report 4667363-3 (Version None)
Quarter: 2005Q2

REPORT INFORMATION
  Report Type: 
  Country: None (occurrence: None)
  Receive Date: 20050428
  Receipt Date: 20050112
  Transmission Date: 20051028
  Serious: Yes (Death)
  Sender: FDA-Public Use
  Company Number: 04P-163-0284059-00

PATIENT
  Age: 75 Year
  Sex: Female

DRUGS (15)
  1. SYNTHROID [Suspect]
     Indication: HYPOTHYROIDISM
     Dosage: 200 MG, 1 IN 1 D, PER ORAL
     Route: 048
     Dates: start: 20040920, end: 20040101
  2. MYSOLINE [Concomitant]
  3. PHEHYTOIN SODIUM [Concomitant]
  4. LANSOPRAZOLE [Concomitant]
  5. FUROSEMIDE [Concomitant]
  6. POTASSIUM CHLORIDE [Concomitant]
  7. TUMS  ULTRA [Concomitant]
  8. RISEDRONATE SODIUM [Concomitant]
  9. FLUTICASONE PROPIONATE [Concomitant]
  10. PULMACORT TURBOHALER [Concomitant]
  11. LEVOSALBUTAMOL [Concomitant]
  12. DUONEB [Concomitant]
  13. POLYSACCHARIDE-IRON COMPLEX [Concomitant]
  14. CRONULAC [Concomitant]
  15. OCCUVITE [Concomitant]

REACTIONS (1)
  - DEATH [None]
